FAERS Safety Report 8890095 (Version 2)
Quarter: 2013Q1

REPORT INFORMATION
  Report Type: Spontaneous
  Country: AU (occurrence: AU)
  Receive Date: 20121107
  Receipt Date: 20130109
  Transmission Date: 20140127
  Serious: Yes (Death, Other)
  Sender: FDA-Public Use
  Company Number: PHHY2012AU101777

PATIENT
  Age: 76 Year
  Sex: Female

DRUGS (5)
  1. ACLASTA [Suspect]
     Dosage: 5 MG, UNK
     Route: 042
     Dates: start: 20100803
  2. ACLASTA [Suspect]
     Dosage: 5 MG, UNK
     Route: 042
     Dates: start: 20110817
  3. ACLASTA [Suspect]
     Dosage: 5 MG, UNK
     Route: 042
     Dates: start: 20121017
  4. MIRTAZAPINE [Concomitant]
  5. AMLODIPINE [Concomitant]

REACTIONS (5)
  - Haemorrhage intracranial [Fatal]
  - Sepsis [Unknown]
  - Dementia [Unknown]
  - Depressed level of consciousness [Unknown]
  - Fall [Unknown]
